FAERS Safety Report 21193248 (Version 3)
Quarter: 2022Q3

REPORT INFORMATION
  Report Type: Spontaneous
  Country: ZA (occurrence: ZA)
  Receive Date: 20220810
  Receipt Date: 20220825
  Transmission Date: 20221026
  Serious: Yes (Hospitalization)
  Sender: FDA-Public Use
  Company Number: ZA-CELLTRION INC.-2022ZA012544

PATIENT

DRUGS (6)
  1. INFLIXIMAB [Suspect]
     Active Substance: INFLIXIMAB
     Indication: Crohn^s disease
     Dosage: 500 MG, 8 WEEKLY INTERVALS
     Route: 042
     Dates: start: 20211113
  2. INFLIXIMAB [Suspect]
     Active Substance: INFLIXIMAB
     Dosage: 500 MG, 8 WEEKLY INTERVALS
     Route: 042
     Dates: start: 20220108
  3. INFLIXIMAB [Suspect]
     Active Substance: INFLIXIMAB
     Dosage: 500 MG, 8 WEEKLY INTERVALS
     Route: 042
     Dates: start: 20220319
  4. INFLIXIMAB [Suspect]
     Active Substance: INFLIXIMAB
     Dosage: 500 MG, 8 WEEKLY INTERVALS
     Route: 042
     Dates: start: 20220506
  5. INFLIXIMAB [Suspect]
     Active Substance: INFLIXIMAB
     Dosage: 400 MG, 8 WEEKLY INTERVALS
     Route: 042
     Dates: start: 20220701
  6. PREDNISONE [Concomitant]
     Active Substance: PREDNISONE
     Indication: Crohn^s disease

REACTIONS (5)
  - Abdominal pain upper [Recovering/Resolving]
  - Incorrect dose administered [Unknown]
  - Overdose [Unknown]
  - Underdose [Unknown]
  - Off label use [Unknown]

NARRATIVE: CASE EVENT DATE: 20220729
